FAERS Safety Report 24897887 (Version 1)
Quarter: 2025Q1

REPORT INFORMATION
  Report Type: Report from Study
  Country: US (occurrence: US)
  Receive Date: 20250129
  Receipt Date: 20250129
  Transmission Date: 20250409
  Serious: Yes (Hospitalization)
  Sender: ABBVIE
  Company Number: US-ABBVIE-6102482

PATIENT
  Age: 81 Year
  Sex: Female
  Weight: 83.46 kg

DRUGS (2)
  1. LUMIGAN [Suspect]
     Active Substance: BIMATOPROST
     Indication: Glaucoma
     Dosage: 1 DROP EACH EYE FORM STRENGTH: 0.01%
     Route: 047
  2. RESTASIS [Suspect]
     Active Substance: CYCLOSPORINE
     Indication: Dry eye
     Route: 047

REACTIONS (5)
  - Upper limb fracture [Recovering/Resolving]
  - Musculoskeletal disorder [Recovering/Resolving]
  - Fall [Recovered/Resolved]
  - Hand fracture [Recovering/Resolving]
  - Shoulder fracture [Recovering/Resolving]

NARRATIVE: CASE EVENT DATE: 20241001
